FAERS Safety Report 6748694-X (Version None)
Quarter: 2010Q2

REPORT INFORMATION
  Report Type: 
  Country: None (occurrence: None)
  Receive Date: 20100601
  Receipt Date: 20100519
  Transmission Date: 20101027
  Serious: Yes (Other)
  Sender: FDA-Public Use
  Company Number: US-JNJFOC-20100508307

PATIENT
  Sex: Male
  Weight: 77.11 kg

DRUGS (8)
  1. REMICADE [Suspect]
     Indication: RHEUMATOID ARTHRITIS
     Dosage: U Q 8 WEEKS
     Route: 042
  2. METHOTREXATE [Concomitant]
     Indication: RHEUMATOID ARTHRITIS
     Route: 048
  3. PREDNISONE TAB [Concomitant]
     Indication: RHEUMATOID ARTHRITIS
     Route: 065
  4. LASIX [Concomitant]
     Indication: DRUG USE FOR UNKNOWN INDICATION
     Route: 065
  5. METFORMIN HCL [Concomitant]
     Indication: BLOOD GLUCOSE ABNORMAL
     Route: 065
  6. KLOR-CON [Concomitant]
     Indication: MINERAL SUPPLEMENTATION
  7. OMEPRAZOLE [Concomitant]
     Indication: GASTROINTESTINAL DISORDER
     Route: 065
  8. FOLIC ACID [Concomitant]
     Indication: PROPHYLAXIS
     Route: 065

REACTIONS (5)
  - BLINDNESS TRANSIENT [None]
  - DYSPNOEA [None]
  - EYE HAEMORRHAGE [None]
  - HYPOAESTHESIA [None]
  - INFUSION RELATED REACTION [None]
